FAERS Safety Report 14000624 (Version 5)
Quarter: 2020Q1

REPORT INFORMATION
  Report Type: Spontaneous
  Country: IE (occurrence: IE)
  Receive Date: 20170922
  Receipt Date: 20200131
  Transmission Date: 20200409
  Serious: Yes (Life-Threatening, Hospitalization, Other)
  Sender: FDA-Public Use
  Company Number: IE-SA-2017SA122907

PATIENT
  Age: 35 Year
  Sex: Female
  Weight: 91 kg

DRUGS (14)
  1. LANTUS [Suspect]
     Active Substance: INSULIN GLARGINE
     Dosage: 90 IU,QD
     Route: 058
  2. FOLIC ACID. [Concomitant]
     Active Substance: FOLIC ACID
     Dosage: UNK UNK,UNK
     Route: 065
     Dates: start: 20170323
  3. AMITRIPTYLINE [Concomitant]
     Active Substance: AMITRIPTYLINE
     Dosage: UNK UNK,UNK
     Route: 065
     Dates: start: 20120907
  4. ACTRAPID [Concomitant]
     Active Substance: INSULIN HUMAN
     Dosage: 1 IU,UNK
     Route: 041
     Dates: start: 20170907
  5. SERTRALINE [Concomitant]
     Active Substance: SERTRALINE HYDROCHLORIDE
     Dosage: UNK UNK,UNK
     Route: 065
     Dates: start: 2000
  6. LANTUS [Suspect]
     Active Substance: INSULIN GLARGINE
     Indication: TYPE 1 DIABETES MELLITUS
     Dosage: 40 IU,QD
     Route: 058
     Dates: start: 20021016
  7. LANTUS [Suspect]
     Active Substance: INSULIN GLARGINE
     Dosage: 46 IU,QD
     Route: 058
  8. LANTUS [Suspect]
     Active Substance: INSULIN GLARGINE
     Dosage: 42 UNK
     Route: 058
     Dates: start: 20021016
  9. INSULIN LISPRO [Suspect]
     Active Substance: INSULIN LISPRO
     Indication: TYPE 1 DIABETES MELLITUS
     Dosage: 72 IU,QD
     Route: 058
     Dates: start: 20021016
  10. INSULIN LISPRO [Suspect]
     Active Substance: INSULIN LISPRO
     Dosage: 90 IU,QD
     Route: 058
  11. METFORMIN HYDROCHLORIDE. [Suspect]
     Active Substance: METFORMIN HYDROCHLORIDE
     Indication: TYPE 1 DIABETES MELLITUS
     Dosage: 1000 MG,QD
     Route: 065
     Dates: start: 20150408
  12. INSULIN LISPRO [Suspect]
     Active Substance: INSULIN LISPRO
     Dosage: 86 IU,QD
     Route: 058
  13. LYRICA [Concomitant]
     Active Substance: PREGABALIN
     Dosage: UNK UNK,UNK
     Route: 065
     Dates: start: 20120907
  14. LEVOTHYROXINE SODIUM. [Concomitant]
     Active Substance: LEVOTHYROXINE SODIUM
     Dosage: UNK UNK,UNK
     Route: 065
     Dates: start: 20170406

REACTIONS (8)
  - Product use issue [Unknown]
  - Hypoglycaemia [Recovered/Resolved]
  - Diabetes mellitus inadequate control [Recovered/Resolved]
  - Postpartum haemorrhage [Recovered/Resolved]
  - Exposure during pregnancy [Unknown]
  - Diabetes mellitus inadequate control [Recovered/Resolved]
  - Diabetes mellitus inadequate control [Recovered/Resolved]
  - Infection [Unknown]

NARRATIVE: CASE EVENT DATE: 20170420
